FAERS Safety Report 6235560-1 (Version None)
Quarter: 2009Q2

REPORT INFORMATION
  Report Type: 
  Country: None (occurrence: None)
  Receive Date: 20090618
  Receipt Date: 20090213
  Transmission Date: 20091009
  Serious: No
  Sender: FDA-Public Use
  Company Number: US-ASTRAZENECA-2009UW04300

PATIENT
  Age: 46 Year
  Sex: Female

DRUGS (4)
  1. RHINOCORT [Suspect]
     Route: 045
     Dates: start: 20090210
  2. RANITIDINE [Concomitant]
  3. LORATADINE [Concomitant]
  4. AMOXICILLIN [Concomitant]

REACTIONS (2)
  - EYELID OEDEMA [None]
  - HEADACHE [None]
